FAERS Safety Report 7439683-0 (Version None)
Quarter: 2011Q2

REPORT INFORMATION
  Report Type: 
  Country: None (occurrence: None)
  Receive Date: 20110427
  Receipt Date: 20110414
  Transmission Date: 20111010
  Serious: Yes (Other)
  Sender: FDA-Public Use
  Company Number: PHFR2011GB02577

PATIENT
  Sex: Male

DRUGS (4)
  1. AMISULPRIDE [Concomitant]
  2. LITHIUM CARBONATE [Concomitant]
  3. CLOZARIL [Suspect]
     Indication: SCHIZOPHRENIA
     Dosage: 225 MG, DAILY
     Route: 048
     Dates: start: 19980624
  4. CITALOPRAM [Concomitant]

REACTIONS (2)
  - OBESITY [None]
  - BLOOD PROLACTIN INCREASED [None]
